FAERS Safety Report 21566115 (Version 1)
Quarter: 2022Q4

REPORT INFORMATION
  Report Type: Spontaneous
  Country: GB (occurrence: GB)
  Receive Date: 20221108
  Receipt Date: 20221108
  Transmission Date: 20230112
  Serious: Yes (Other)
  Sender: FDA-Public Use
  Company Number: None

PATIENT
  Age: 73 Year
  Sex: Female
  Weight: 68 kg

DRUGS (11)
  1. INDAPAMIDE [Suspect]
     Active Substance: INDAPAMIDE
     Indication: Product used for unknown indication
     Dosage: UNK
     Route: 065
  2. FLUCLOXACILLIN [Suspect]
     Active Substance: FLUCLOXACILLIN
     Indication: Product used for unknown indication
     Dosage: 500 MILLIGRAM, QID, (TAKE TWO CAPSULES FOUR TIMES A DAY FOR 6 WEEKS)
     Route: 065
     Dates: start: 20220923
  3. APIXABAN [Concomitant]
     Active Substance: APIXABAN
     Dosage: 1 DOSAGE FORM, BID, (TO HELP PREVENT BLO)
     Route: 065
     Dates: start: 20210916
  4. ATORVASTATIN [Concomitant]
     Active Substance: ATORVASTATIN
     Dosage: 1 DOSAGE FORM, QD
     Route: 065
     Dates: start: 20210916
  5. BENDROFLUMETHIAZIDE [Concomitant]
     Active Substance: BENDROFLUMETHIAZIDE
     Dosage: 1 DOSAGE FORM, QD
     Route: 065
     Dates: start: 20210916
  6. BISOPROLOL [Concomitant]
     Active Substance: BISOPROLOL
     Dosage: 1 DOSAGE FORM, QD
     Route: 065
     Dates: start: 20210916
  7. ENALAPRIL [Concomitant]
     Active Substance: ENALAPRIL
     Dosage: 1 DOSAGE FORM, QD
     Route: 065
     Dates: start: 20211029
  8. FLECAINIDE ACETATE [Concomitant]
     Active Substance: FLECAINIDE ACETATE
     Dosage: 1 DOSAGE FORM, BID
     Route: 065
     Dates: start: 20210916
  9. MAGNASPARTATE [Concomitant]
     Dosage: 1 DOSAGE FORM, QD, (1 SACHET DAILY)
     Route: 065
     Dates: start: 20221005, end: 20221015
  10. SNO TEARS [Concomitant]
     Dosage: UNK, (USE AS DIRECTED)
     Route: 065
     Dates: start: 20210916
  11. MINERAL OIL\PARAFFIN [Concomitant]
     Active Substance: MINERAL OIL\PARAFFIN
     Dosage: UNK, (USE AS DIRECTED)
     Route: 065
     Dates: start: 20210916

REACTIONS (4)
  - Malaise [Unknown]
  - Atrial fibrillation [Unknown]
  - Hypomagnesaemia [Recovering/Resolving]
  - Hyponatraemia [Recovering/Resolving]

NARRATIVE: CASE EVENT DATE: 20221024
